FAERS Safety Report 22239617 (Version 1)
Quarter: 2023Q2

REPORT INFORMATION
  Report Type: Spontaneous
  Country: CA (occurrence: CA)
  Receive Date: 20230421
  Receipt Date: 20230421
  Transmission Date: 20230721
  Serious: Yes (Other)
  Sender: FDA-Public Use
  Company Number: CA-PFIZER INC-202200731258

PATIENT
  Age: 73 Year
  Sex: Male

DRUGS (6)
  1. XELJANZ XR [Suspect]
     Active Substance: TOFACITINIB CITRATE
     Indication: Rheumatoid arthritis
     Dosage: 11 MG, 1X/DAY
     Route: 048
     Dates: start: 2021, end: 202112
  2. XELJANZ XR [Suspect]
     Active Substance: TOFACITINIB CITRATE
     Dosage: 11 MG, 1X/DAY
     Route: 048
     Dates: end: 2023
  3. METHOTREXATE [Concomitant]
     Active Substance: METHOTREXATE
     Dosage: 1 DF, UNK DOSE, FREQ
     Route: 065
     Dates: start: 2021
  4. NAPROSYN [Concomitant]
     Active Substance: NAPROXEN
     Dosage: UNK
  5. PREDNISONE [Concomitant]
     Active Substance: PREDNISONE
     Dosage: UNK PREDNISONE RECEIVED IN NOVEMBER
  6. SULFASALAZINE [Concomitant]
     Active Substance: SULFASALAZINE
     Indication: Rheumatoid arthritis
     Dosage: 1 DF, DOSE AND FREQ UNKNOWN
     Route: 042

REACTIONS (7)
  - Hip arthroplasty [Unknown]
  - Condition aggravated [Unknown]
  - Drug ineffective [Unknown]
  - Treatment failure [Unknown]
  - Pain [Unknown]
  - Tendon pain [Unknown]
  - Synovitis [Unknown]

NARRATIVE: CASE EVENT DATE: 20210101
